FAERS Safety Report 8432345-2 (Version None)
Quarter: 2012Q2

REPORT INFORMATION
  Report Type: 
  Country: None (occurrence: None)
  Receive Date: 20120613
  Receipt Date: 20120611
  Transmission Date: 20120825
  Serious: Yes (Death)
  Sender: FDA-Public Use
  Company Number: PHHY2011US14297

PATIENT
  Sex: Female

DRUGS (46)
  1. LAMICTAL [Concomitant]
     Dosage: UNK
  2. LEVOTHYROXINE SODIUM [Concomitant]
     Dosage: UNK
  3. TEMAZEPAM [Concomitant]
     Dosage: UNK
  4. VITAMIN D [Concomitant]
     Dosage: UNK
  5. MIRAPEX [Concomitant]
     Dosage: UNK
  6. SPIRONOLACTONE [Concomitant]
     Dosage: UNK
  7. SEROQUEL [Concomitant]
     Dosage: UNK
  8. VITAMIN B-12 [Concomitant]
     Dosage: UNK
  9. OXYCODONE AND ASPIRIN [Concomitant]
     Dosage: UNK
  10. SULFASALAZINE [Concomitant]
     Dosage: UNK
  11. FOLIC ACID [Concomitant]
     Dosage: UNK
  12. LAMOTRIGINE [Concomitant]
     Dosage: UNK
  13. FUROSEMIDE [Concomitant]
     Dosage: UNK
  14. METHENAMINE HIPPURATE [Concomitant]
     Dosage: UNK
  15. ASPIRIN [Concomitant]
     Dosage: UNK
  16. LASIX [Concomitant]
     Indication: CARDIAC DISORDER
     Dosage: 90 MG, QD
     Route: 048
  17. DOCUSATE SODIUM [Concomitant]
     Dosage: UNK
  18. TRIMETHOBENZAMIDE HCL [Concomitant]
     Dosage: UNK
  19. PREDNISONE TAB [Concomitant]
     Dosage: UNK
  20. EXELON [Concomitant]
     Dosage: 1.5 MG
  21. CYTOMEL [Concomitant]
     Indication: HYPOTHYROIDISM
     Dosage: 25 GM EVERYDAY
     Route: 048
  22. AMIODARONE HCL [Concomitant]
     Indication: ATRIAL FIBRILLATION
     Dosage: UNK
  23. MEGESTROL ACETATE [Concomitant]
     Dosage: UNK
  24. BENADRYL [Concomitant]
     Dosage: UNK
  25. PACERONE [Concomitant]
     Dosage: UNK UKN, UNK
  26. PROTONIX [Concomitant]
     Dosage: UNK
  27. VOLTAREN [Concomitant]
     Dosage: UNK
  28. LISINOPRIL [Concomitant]
     Dosage: UNK
  29. ENSURE PLUS [Concomitant]
     Dosage: UNK
  30. SENNA-MINT WAF [Concomitant]
     Dosage: UNK
  31. CARVEDIL [Concomitant]
     Indication: CARDIAC DISORDER
     Dosage: 3.125 G, BID
     Route: 048
  32. ASCORBIC ACID [Concomitant]
     Dosage: UNK
  33. LORAZEPAM [Concomitant]
     Dosage: UNK
  34. METHENAMINE MANDELATE [Concomitant]
     Dosage: UNK
  35. MIRALAX [Concomitant]
     Dosage: UNK
  36. NITROGLYCERIN [Concomitant]
     Dosage: UNK
  37. PRAVASTATIN SODIUM [Concomitant]
     Dosage: UNK UKN, UNK
  38. NITROGLYCERIN [Concomitant]
     Dosage: UNK
  39. MULTI-VITAMINS [Concomitant]
     Dosage: UNK
  40. VITAMIN E [Concomitant]
     Dosage: UNK
  41. HYDROMORFON [Concomitant]
     Dosage: UNK
  42. RECLAST [Suspect]
     Indication: OSTEOPOROSIS
     Dosage: 5 MG, UNK
     Route: 042
     Dates: start: 20110216
  43. HYDROXYCHLOROQUINE SULFATE [Concomitant]
     Dosage: UNK
  44. ZOLOFT [Concomitant]
     Dosage: UNK
  45. AMIODARONE HCL [Concomitant]
  46. ASPIRIN [Concomitant]
     Indication: CARDIAC DISORDER
     Dosage: 162 MG DAILY
     Route: 054
     Dates: start: 20100806

REACTIONS (1)
  - SUDDEN DEATH [None]
